FAERS Safety Report 6335320-7 (Version None)
Quarter: 2009Q3

REPORT INFORMATION
  Report Type: 
  Country: None (occurrence: None)
  Receive Date: 20090831
  Receipt Date: 20090825
  Transmission Date: 20100115
  Serious: No
  Sender: FDA-Public Use
  Company Number: US-B.I. PHARMACEUTICALS,INC./RIDGEFIELD-2009-BP-09336BP

PATIENT
  Age: 79 Year
  Sex: Female
  Weight: 45.36 kg

DRUGS (2)
  1. SPIRIVA [Suspect]
     Indication: CHRONIC OBSTRUCTIVE PULMONARY DISEASE
     Dosage: 18 MCG
  2. VITAMIN D [Concomitant]

REACTIONS (3)
  - POLLAKIURIA [None]
  - RESIDUAL URINE [None]
  - URINARY RETENTION [None]
